FAERS Safety Report 9821455 (Version 1)
Quarter: 2014Q1

REPORT INFORMATION
  Report Type: Spontaneous
  Country: US (occurrence: None)
  Receive Date: 20140115
  Receipt Date: 20140115
  Transmission Date: 20141002
  Serious: Yes (Other)
  Sender: FDA-Public Use
  Company Number: None

PATIENT
  Sex: 0

DRUGS (1)
  1. LEVOTHYROXINE [Suspect]
     Dosage: 1 TAB
     Route: 048

REACTIONS (3)
  - Discomfort [None]
  - Product substitution issue [None]
  - Abdominal distension [None]
